FAERS Safety Report 5284937-X (Version None)
Quarter: 2007Q1

REPORT INFORMATION
  Report Type: 
  Country: None (occurrence: None)
  Receive Date: 20070328
  Receipt Date: 20070313
  Transmission Date: 20070707
  Serious: Yes (Hospitalization, Other)
  Sender: FDA-Public Use
  Company Number: 2006JP003708

PATIENT
  Age: 81 Year
  Sex: Female
  Weight: 43.4 kg

DRUGS (26)
  1. PROGRAF [Suspect]
     Indication: MYASTHENIA GRAVIS
     Dosage: SEE IMAGE
     Route: 048
     Dates: start: 20060130, end: 20060219
  2. PROGRAF [Suspect]
     Indication: MYASTHENIA GRAVIS
     Dosage: SEE IMAGE
     Route: 048
     Dates: start: 20060220, end: 20060226
  3. PROGRAF [Suspect]
     Indication: MYASTHENIA GRAVIS
     Dosage: SEE IMAGE
     Route: 048
     Dates: start: 20060227, end: 20060601
  4. PROGRAF [Suspect]
     Indication: MYASTHENIA GRAVIS
     Dosage: SEE IMAGE
     Route: 048
     Dates: start: 20060602
  5. PREDNISOLONE [Suspect]
     Indication: MYASTHENIA GRAVIS
     Dosage: 80 MG, QOD, ORAL
     Route: 048
     Dates: start: 20051215, end: 20060315
  6. PREDNISOLONE [Suspect]
     Indication: MYASTHENIA GRAVIS
     Dosage: SEE IMAGE
     Route: 048
     Dates: start: 20060317, end: 20060323
  7. PREDNISOLONE [Suspect]
     Indication: MYASTHENIA GRAVIS
     Dosage: SEE IMAGE
     Route: 048
     Dates: start: 20060325, end: 20060331
  8. PREDNISOLONE [Suspect]
     Indication: MYASTHENIA GRAVIS
     Dosage: SEE IMAGE
     Route: 048
     Dates: start: 20060402, end: 20060408
  9. PREDNISOLONE [Suspect]
     Indication: MYASTHENIA GRAVIS
     Dosage: SEE IMAGE
     Route: 048
     Dates: start: 20060410, end: 20060416
  10. PREDNISOLONE [Suspect]
     Indication: MYASTHENIA GRAVIS
     Dosage: SEE IMAGE
     Route: 048
     Dates: start: 20060418, end: 20060424
  11. PREDNISOLONE [Suspect]
     Indication: MYASTHENIA GRAVIS
     Dosage: SEE IMAGE
     Route: 048
     Dates: start: 20060426, end: 20060502
  12. PREDNISOLONE [Suspect]
     Indication: MYASTHENIA GRAVIS
     Dosage: SEE IMAGE
     Route: 048
     Dates: start: 20060504, end: 20060504
  13. BIOFERMIN (STRETOCOCCUS FAECALIS, LACTOBACILLUS ACIDOPHILUS, BACILLUS [Concomitant]
  14. ATELEC (CLINIDIPINE) TABLET [Concomitant]
  15. ASPIRIN [Concomitant]
  16. LANSOPRAZOLE [Concomitant]
  17. MESTINON [Concomitant]
  18. SCOPOLIA EXTRACT (SCOPOLIA CARNIOLICA EXTRACT) POWDER [Concomitant]
  19. VASOLAN (VERAPAMIL HYDROCHLORIDE) TABLET [Concomitant]
  20. D ALFA (ALFACALIDOL) CAPSULE [Concomitant]
  21. MUCOSTA (REBAMIPIDE) TABLET [Concomitant]
  22. DEPAS (ETIZOLAM) TABLET [Concomitant]
  23. BISOPROLOL FUMARATE [Concomitant]
  24. ASPARA K (ASPARTATE POTASSIUM) POWDER [Concomitant]
  25. KENALOG OINTMENT [Concomitant]
  26. AFTACH TABLET [Concomitant]

REACTIONS (4)
  - DEPRESSED LEVEL OF CONSCIOUSNESS [None]
  - IMMUNE SYSTEM DISORDER [None]
  - MENINGITIS CRYPTOCOCCAL [None]
  - ORAL CANDIDIASIS [None]
